FAERS Safety Report 5506833-2 (Version None)
Quarter: 2007Q4

REPORT INFORMATION
  Report Type: 
  Country: None (occurrence: None)
  Receive Date: 20071105
  Receipt Date: 20071022
  Transmission Date: 20080405
  Serious: No
  Sender: FDA-Public Use
  Company Number: US-JNJFOC-20071000543

PATIENT
  Sex: Male

DRUGS (6)
  1. INVEGA [Suspect]
     Indication: DRUG THERAPY
     Route: 048
  2. INVEGA [Suspect]
     Indication: BRAIN DAMAGE
     Route: 048
  3. INVEGA [Suspect]
     Indication: ANXIETY
     Route: 048
  4. CYMBALTA [Concomitant]
     Indication: AFFECTIVE DISORDER
  5. SEROQUEL [Concomitant]
     Indication: ANXIETY
  6. SEROQUEL [Concomitant]
     Indication: DRUG THERAPY

REACTIONS (1)
  - RASH GENERALISED [None]
